FAERS Safety Report 7992763-3 (Version None)
Quarter: 2011Q4

REPORT INFORMATION
  Report Type: 
  Country: None (occurrence: None)
  Receive Date: 20111219
  Receipt Date: 20110517
  Transmission Date: 20120403
  Serious: No
  Sender: FDA-Public Use
  Company Number: US-ASTRAZENECA-2011SE14922

PATIENT
  Age: 83 Year
  Sex: Female

DRUGS (8)
  1. CENTRUM SILVER [Concomitant]
  2. LIPITOR [Concomitant]
  3. RAMIPRIL [Concomitant]
  4. METHAMAZOLE [Concomitant]
  5. GLIMEPIRIDE [Concomitant]
  6. DRISDOL [Concomitant]
  7. CRESTOR [Suspect]
     Indication: LIPIDS INCREASED
     Route: 048
     Dates: start: 20110302
  8. FOLBIC [Concomitant]

REACTIONS (1)
  - DRY MOUTH [None]
